FAERS Safety Report 9424487 (Version 3)
Quarter: 2013Q3

REPORT INFORMATION
  Report Type: Spontaneous
  Country: DE (occurrence: DE)
  Receive Date: 20130729
  Receipt Date: 20130823
  Transmission Date: 20140515
  Serious: Yes (Life-Threatening, Other)
  Sender: FDA-Public Use
  Company Number: DE-BAYER-2013-088579

PATIENT
  Age: 13 Year
  Sex: Female
  Weight: 45 kg

DRUGS (3)
  1. NEXAVAR [Suspect]
     Indication: OSTEOSARCOMA METASTATIC
     Dosage: 400 MG, BID
     Dates: start: 20130708, end: 20130714
  2. COTRIM [Concomitant]
     Indication: PROPHYLAXIS
     Dosage: 2X160 MG, 2X/WOCHE
     Route: 048
     Dates: start: 201201
  3. ANTRAMUPS [Concomitant]
     Indication: PROPHYLAXIS
     Dosage: 40 MG, QD
     Route: 048

REACTIONS (7)
  - Erythema [Recovering/Resolving]
  - Palmar-plantar erythrodysaesthesia syndrome [Recovering/Resolving]
  - Palmar-plantar erythrodysaesthesia syndrome [Recovering/Resolving]
  - Pain [Recovering/Resolving]
  - Pyrexia [Recovering/Resolving]
  - Mucosal inflammation [Recovering/Resolving]
  - C-reactive protein increased [Recovering/Resolving]
